FAERS Safety Report 9719201 (Version 1)
Quarter: 2013Q4

REPORT INFORMATION
  Report Type: Spontaneous
  Country: AU (occurrence: AU)
  Receive Date: 20131127
  Receipt Date: 20131127
  Transmission Date: 20140711
  Serious: Yes (Other)
  Sender: FDA-Public Use
  Company Number: PHHY2013AU134299

PATIENT
  Sex: Female

DRUGS (1)
  1. CANDESARTAN SANDOZ [Suspect]
     Indication: HYPERTENSION
     Dosage: 4 MG, DAILY
     Dates: start: 20130924, end: 20130925

REACTIONS (1)
  - Cardiac flutter [Recovered/Resolved]
